FAERS Safety Report 14308518 (Version 1)
Quarter: 2017Q4

REPORT INFORMATION
  Report Type: Report from Study
  Country: IT (occurrence: IT)
  Receive Date: 20171220
  Receipt Date: 20171220
  Transmission Date: 20180321
  Serious: Yes (Death, Other)
  Sender: FDA-Public Use
  Company Number: IT-B.I. PHARMACEUTICALS,INC./RIDGEFIELD-2017-BI-067265

PATIENT
  Age: 58 Year
  Sex: Female

DRUGS (2)
  1. GILOTRIF [Suspect]
     Active Substance: AFATINIB
     Indication: EGFR GENE MUTATION
     Dosage: DOSAGE: 30 MG DOS DIE
     Route: 065
  2. GILOTRIF [Suspect]
     Active Substance: AFATINIB
     Indication: LUNG ADENOCARCINOMA
     Dosage: DOSAGE: 40 MG DOS DIE
     Route: 065

REACTIONS (7)
  - Death [Fatal]
  - Diarrhoea [Unknown]
  - Malignant neoplasm progression [Unknown]
  - Pancreatic failure [Unknown]
  - Metastases to central nervous system [Unknown]
  - Jaundice [Unknown]
  - Gene mutation [Unknown]
